FAERS Safety Report 17696308 (Version 1)
Quarter: 2020Q2

REPORT INFORMATION
  Report Type: Report from Study
  Country: None (occurrence: US)
  Receive Date: 20200423
  Receipt Date: 20200423
  Transmission Date: 20200714
  Serious: Yes (Other)
  Sender: FDA-Public Use
  Company Number: US-ABBVIE-20P-163-3372400-00

PATIENT
  Sex: Male

DRUGS (2)
  1. IMBRUVICA [Suspect]
     Active Substance: IBRUTINIB
     Indication: MANTLE CELL LYMPHOMA
     Route: 048
     Dates: start: 20150312, end: 20180524
  2. IMBRUVICA [Suspect]
     Active Substance: IBRUTINIB
     Indication: MANTLE CELL LYMPHOMA
     Route: 048
     Dates: start: 20180525

REACTIONS (11)
  - Disturbance in attention [Unknown]
  - Panic attack [Unknown]
  - Pain in extremity [Unknown]
  - Fatigue [Unknown]
  - Foot fracture [Unknown]
  - Anxiety [Unknown]
  - Arthralgia [Unknown]
  - Nerve injury [Unknown]
  - Balance disorder [Unknown]
  - Dry eye [Unknown]
  - Depression [Unknown]
